FAERS Safety Report 11246562 (Version 2)
Quarter: 2015Q3

REPORT INFORMATION
  Report Type: Spontaneous
  Country: US (occurrence: None)
  Receive Date: 20150706
  Receipt Date: 20150715
  Transmission Date: 20151125
  Serious: Yes (Other)
  Sender: FDA-Public Use
  Company Number: CO-ZN-US-2015-023

PATIENT
  Age: 81 Year
  Sex: Female
  Weight: 41.73 kg

DRUGS (10)
  1. SUCRAFATE [Suspect]
     Active Substance: SUCRALFATE
     Indication: PRODUCT USED FOR UNKNOWN INDICATION
     Dates: start: 201412
  2. TAGAMET [Suspect]
     Active Substance: CIMETIDINE
     Indication: GASTROOESOPHAGEAL REFLUX DISEASE
  3. ASPIRIN (BABY) (ACETYLSALICYLIC ACID) [Concomitant]
  4. PRILOSEC  (OMEPRAZOLE) [Suspect]
     Active Substance: OMEPRAZOLE MAGNESIUM
     Indication: DYSPEPSIA
  5. NEXIUM 24HR [Suspect]
     Active Substance: ESOMEPRAZOLE MAGNESIUM
     Indication: DYSPEPSIA
     Route: 048
     Dates: start: 201412
  6. TAGAMET [Suspect]
     Active Substance: CIMETIDINE
     Indication: DYSPEPSIA
  7. NEXIUM 24HR [Suspect]
     Active Substance: ESOMEPRAZOLE MAGNESIUM
     Indication: GASTROOESOPHAGEAL REFLUX DISEASE
     Route: 048
     Dates: start: 201412
  8. ZANTAC [Suspect]
     Active Substance: RANITIDINE HYDROCHLORIDE
     Indication: GASTROOESOPHAGEAL REFLUX DISEASE
  9. ZANTAC [Suspect]
     Active Substance: RANITIDINE HYDROCHLORIDE
     Indication: DYSPEPSIA
  10. PRILOSEC  (OMEPRAZOLE) [Suspect]
     Active Substance: OMEPRAZOLE MAGNESIUM
     Indication: GASTROOESOPHAGEAL REFLUX DISEASE

REACTIONS (8)
  - Soft tissue disorder [None]
  - Product quality issue [None]
  - Dyspepsia [None]
  - Gastrointestinal inflammation [None]
  - Pain [None]
  - Drug intolerance [None]
  - Drug ineffective [None]
  - Weight decreased [None]
